FAERS Safety Report 5905122-1 (Version None)
Quarter: 2008Q3

REPORT INFORMATION
  Report Type: 
  Country: None (occurrence: None)
  Receive Date: 20080909
  Receipt Date: 20071120
  Transmission Date: 20090109
  Serious: Yes (Hospitalization)
  Sender: FDA-Public Use
  Company Number: 163-20785-07091597

PATIENT
  Age: 77 Year
  Sex: Female

DRUGS (4)
  1. THALOMID [Suspect]
     Indication: MULTIPLE MYELOMA
     Dosage: 200 MG, QD, ORAL
     Route: 048
     Dates: start: 20041026, end: 20050101
  2. ARIMIDEX [Concomitant]
  3. NORVASC [Concomitant]
  4. SYNTHROID [Concomitant]

REACTIONS (1)
  - HYPERCALCAEMIA [None]
